FAERS Safety Report 24044087 (Version 3)
Quarter: 2024Q4

REPORT INFORMATION
  Report Type: Report from Study
  Country: US (occurrence: US)
  Receive Date: 20240703
  Receipt Date: 20241024
  Transmission Date: 20250114
  Serious: Yes (Other)
  Sender: ROCHE
  Company Number: US-ROCHE-10000013403

PATIENT

DRUGS (1)
  1. XOLAIR PFS [Suspect]
     Active Substance: OMALIZUMAB
     Indication: Product used for unknown indication
     Route: 065

REACTIONS (4)
  - Anaphylactic shock [Unknown]
  - Dizziness [Unknown]
  - Vomiting [Unknown]
  - Brain fog [Unknown]
